FAERS Safety Report 18250825 (Version 1)
Quarter: 2020Q3

REPORT INFORMATION
  Report Type: Spontaneous
  Country: JP (occurrence: JP)
  Receive Date: 20200910
  Receipt Date: 20200910
  Transmission Date: 20201103
  Serious: No
  Sender: FDA-Public Use
  Company Number: JP-TOLMAR, INC.-20JP022613

PATIENT
  Age: 96 Year
  Sex: Female

DRUGS (1)
  1. IMIQUIMOD. [Suspect]
     Active Substance: IMIQUIMOD
     Indication: NEUROENDOCRINE CARCINOMA OF THE SKIN
     Dosage: UNK, 3 TIMES WEEKLY
     Route: 061

REACTIONS (1)
  - Off label use [Unknown]
